FAERS Safety Report 7101160-4 (Version None)
Quarter: 2010Q4

REPORT INFORMATION
  Report Type: 
  Country: None (occurrence: None)
  Receive Date: 20101105
  Receipt Date: 20101022
  Transmission Date: 20110411
  Serious: Yes (Life-Threatening, Hospitalization)
  Sender: FDA-Public Use
  Company Number: DSA_44155_2010

PATIENT
  Sex: Male

DRUGS (27)
  1. ISORDIL [Suspect]
     Indication: PRODUCT USED FOR UNKNOWN INDICATION
     Dosage: (DF)
  2. DAPAGLIFLOZIN [Suspect]
     Indication: TYPE 2 DIABETES MELLITUS
     Dosage: (10 MG DAILY ORAL)
     Route: 048
     Dates: start: 20100608
  3. PLACEBO [Suspect]
     Indication: TYPE 2 DIABETES MELLITUS
     Dosage: (DF ORAL)
     Route: 048
     Dates: start: 20100608
  4. HEPARIN SODIUM [Suspect]
     Indication: PRODUCT USED FOR UNKNOWN INDICATION
     Dosage: (DF ORAL)
     Route: 048
  5. NITROGLYCERIN [Suspect]
     Indication: PRODUCT USED FOR UNKNOWN INDICATION
     Dosage: (DF)
  6. MAGNESIUM [Concomitant]
  7. OMEGA-3 FATTY ACIDS [Concomitant]
  8. POTASSIUM CHLORIDE [Concomitant]
  9. GLUCOSAMINE [Concomitant]
  10. CHONDROITIN [Concomitant]
  11. ASCORBIC ACID [Concomitant]
  12. MULTIPLE VITAMINS [Concomitant]
  13. ADVIL LIQUI-GELS [Concomitant]
  14. VICKS DAYQUIL SINUS PRESSURE + PAIN RELIEF W/ IBUPROFEN [Concomitant]
  15. NYQUIL [Concomitant]
  16. NEOSPORIN [Concomitant]
  17. METFORMIN [Concomitant]
  18. HUMALOG [Concomitant]
  19. LANTUS [Concomitant]
  20. FUROSEMIDE [Concomitant]
  21. NIACIN [Concomitant]
  22. LISINOPRIL [Concomitant]
  23. ASPIRIN [Concomitant]
  24. PLAVIX [Concomitant]
  25. LOVASTATIN [Concomitant]
  26. CARVEDILOL [Concomitant]
  27. COQ10 [Concomitant]

REACTIONS (3)
  - CHEST PAIN [None]
  - CONDITION AGGRAVATED [None]
  - CORONARY ARTERY DISEASE [None]
